FAERS Safety Report 17324758 (Version 1)
Quarter: 2020Q1

REPORT INFORMATION
  Report Type: Report from Study
  Country: CA (occurrence: CA)
  Receive Date: 20200127
  Receipt Date: 20200127
  Transmission Date: 20200409
  Serious: Yes (Other)
  Sender: FDA-Public Use
  Company Number: CA-TAKEDA-2017TUS007005

PATIENT
  Age: 23 Year
  Sex: Female

DRUGS (6)
  1. VEDOLIZUMAB [Suspect]
     Active Substance: VEDOLIZUMAB
     Indication: CROHN^S DISEASE
     Dosage: 300 MILLIGRAM
     Route: 042
     Dates: start: 20160509
  2. PENTASA [Concomitant]
     Active Substance: MESALAMINE
     Dosage: 500 MG, BID
     Dates: start: 20120221
  3. IRON [Concomitant]
     Active Substance: IRON
     Dosage: UNK
     Dates: start: 20160315
  4. VEDOLIZUMAB [Suspect]
     Active Substance: VEDOLIZUMAB
     Dosage: 300 MILLIGRAM
     Route: 042
     Dates: end: 20190131
  5. IRON [Concomitant]
     Active Substance: IRON
     Dosage: 300 MILLIGRAM, QD
  6. VEDOLIZUMAB [Suspect]
     Active Substance: VEDOLIZUMAB
     Dosage: 300 MILLIGRAM
     Route: 042
     Dates: start: 20200121

REACTIONS (2)
  - Intestinal operation [Unknown]
  - Abdominal pain [Unknown]
